FAERS Safety Report 9427599 (Version 1)
Quarter: 2013Q3

REPORT INFORMATION
  Report Type: Report from Study
  Country: US (occurrence: US)
  Receive Date: 20130730
  Receipt Date: 20130730
  Transmission Date: 20140515
  Serious: No
  Sender: FDA-Public Use
  Company Number: US-ABBOTT-12P-163-0985442-00

PATIENT
  Age: 52 Year
  Sex: Male
  Weight: 136.2 kg

DRUGS (3)
  1. NIASPAN (COATED) [Suspect]
     Indication: MYOCARDIAL INFARCTION
     Dosage: 1000 MG, AT BEDTIME
     Route: 048
     Dates: start: 201010
  2. NIASPAN (COATED) [Suspect]
     Indication: CORONARY ARTERIAL STENT INSERTION
  3. ASPIRIN [Concomitant]
     Indication: PRODUCT USED FOR UNKNOWN INDICATION
     Dosage: DAILY IN THE MORNING
     Route: 048

REACTIONS (6)
  - Flushing [Recovered/Resolved]
  - Skin burning sensation [Recovered/Resolved]
  - Pruritus [Recovered/Resolved]
  - Flushing [Recovered/Resolved]
  - Skin burning sensation [Recovered/Resolved]
  - Pruritus [Recovered/Resolved]
